FAERS Safety Report 14837814 (Version 2)
Quarter: 2018Q3

REPORT INFORMATION
  Report Type: Report from Study
  Country: GB (occurrence: GB)
  Receive Date: 20180502
  Receipt Date: 20180909
  Transmission Date: 20181010
  Serious: Yes (Hospitalization)
  Sender: FDA-Public Use
  Company Number: GB-BAXTER-2018BAX012506

PATIENT
  Age: 69 Year
  Sex: Female

DRUGS (2)
  1. PN [Suspect]
     Active Substance: PROTOPORPHYRIN DISODIUM
     Indication: PARENTERAL NUTRITION
     Route: 051
  2. WATER FOR INJECTION [Suspect]
     Active Substance: WATER
     Indication: PARENTERAL NUTRITION
     Route: 051

REACTIONS (2)
  - Oedema peripheral [Recovered/Resolved]
  - Dyspnoea [Recovered/Resolved]

NARRATIVE: CASE EVENT DATE: 20180405
